FAERS Safety Report 15721119 (Version 1)
Quarter: 2018Q4

REPORT INFORMATION
  Report Type: Spontaneous
  Country: ES (occurrence: ES)
  Receive Date: 20181214
  Receipt Date: 20181214
  Transmission Date: 20190205
  Serious: Yes (Hospitalization)
  Sender: FDA-Public Use
  Company Number: ES-TEVA-2018-ES-985622

PATIENT
  Age: 57 Year
  Sex: Male
  Weight: 82 kg

DRUGS (1)
  1. CIPROFLOXACINO (2049A) [Suspect]
     Active Substance: CIPROFLOXACIN
     Indication: PNEUMONIA PSEUDOMONAL
     Route: 050
     Dates: start: 20180822, end: 20180906

REACTIONS (1)
  - Tubulointerstitial nephritis [Recovered/Resolved]

NARRATIVE: CASE EVENT DATE: 20180906
